FAERS Safety Report 6252996-3 (Version None)
Quarter: 2009Q2

REPORT INFORMATION
  Report Type: 
  Country: None (occurrence: None)
  Receive Date: 20090629
  Receipt Date: 20090629
  Transmission Date: 20091009
  Serious: Yes (Hospitalization)
  Sender: FDA-Public Use
  Company Number: None

PATIENT
  Sex: Female
  Weight: 62.3696 kg

DRUGS (2)
  1. GEMCITABINE [Suspect]
     Dosage: 1000MG
     Dates: end: 20090622
  2. TARCEVA [Suspect]
     Dosage: 100MG
     Dates: end: 20090622

REACTIONS (2)
  - DIARRHOEA [None]
  - PYREXIA [None]
